FAERS Safety Report 7630808-0 (Version None)
Quarter: 2011Q3

REPORT INFORMATION
  Report Type: 
  Country: None (occurrence: None)
  Receive Date: 20110723
  Receipt Date: 20110715
  Transmission Date: 20111222
  Serious: Yes (Other)
  Sender: FDA-Public Use
  Company Number: US-ABBOTT-10P-163-0672093-00

PATIENT
  Age: 37 Year
  Sex: Female

DRUGS (13)
  1. PERCOCET-5 [Concomitant]
     Indication: PRODUCT USED FOR UNKNOWN INDICATION
     Dosage: 5-325MG AS NEEDED
  2. HUMIRA [Suspect]
     Indication: RHEUMATOID ARTHRITIS
     Route: 058
     Dates: start: 20100609, end: 20100609
  3. CALCIUM CARBONATE [Concomitant]
     Indication: PRODUCT USED FOR UNKNOWN INDICATION
     Dosage: DAILY
  4. EMERGE [Concomitant]
     Indication: MIGRAINE
  5. ZYRTEC [Concomitant]
     Indication: HYPERSENSITIVITY
     Route: 048
  6. TRAMADOL HCL [Concomitant]
     Indication: MIGRAINE
  7. HUMIRA [Suspect]
     Route: 058
     Dates: start: 20100812
  8. METHOTREXATE [Concomitant]
     Indication: PRODUCT USED FOR UNKNOWN INDICATION
     Dates: end: 20100827
  9. FOLIC ACID [Concomitant]
     Indication: PRODUCT USED FOR UNKNOWN INDICATION
  10. HUMIRA [Suspect]
     Route: 058
     Dates: start: 20100626, end: 20100812
  11. FLONASE [Concomitant]
     Indication: PRODUCT USED FOR UNKNOWN INDICATION
     Dosage: 2 PUFFS EACH NOSTRIL DAILY
     Route: 045
  12. RETIN-A [Concomitant]
     Indication: PRODUCT USED FOR UNKNOWN INDICATION
     Dosage: NIGHTLY
  13. VITAMIN D [Concomitant]
     Indication: PRODUCT USED FOR UNKNOWN INDICATION
     Dosage: DAILY

REACTIONS (17)
  - DERMATITIS CONTACT [None]
  - INJECTION SITE PAIN [None]
  - MENISCUS LESION [None]
  - ARTHROSCOPY [None]
  - SYNOVITIS [None]
  - DENTAL CARIES [None]
  - INJECTION SITE ERYTHEMA [None]
  - MUSCULOSKELETAL STIFFNESS [None]
  - CHLOASMA [None]
  - SYNOVIAL CYST [None]
  - DRY MOUTH [None]
  - INJECTION SITE PRURITUS [None]
  - PRECANCEROUS SKIN LESION [None]
  - SJOGREN'S SYNDROME [None]
  - INJECTION SITE PAPULE [None]
  - BONE MARROW OEDEMA [None]
  - SKIN DEPIGMENTATION [None]
